FAERS Safety Report 8218442-5 (Version None)
Quarter: 2012Q1

REPORT INFORMATION
  Report Type: 
  Country: None (occurrence: None)
  Receive Date: 20120316
  Receipt Date: 20120316
  Transmission Date: 20120608
  Serious: Yes (Hospitalization)
  Sender: FDA-Public Use
  Company Number: None

PATIENT
  Sex: Female
  Weight: 68.9 kg

DRUGS (9)
  1. ZOMETA [Concomitant]
  2. CELEXA [Concomitant]
  3. XANAX [Concomitant]
  4. ZOCOR [Concomitant]
  5. CORGARD [Concomitant]
  6. LYRICA [Concomitant]
  7. LAPATINIB [Suspect]
     Indication: BREAST CANCER METASTATIC
     Dosage: 1500MG ONCE A DAY ORALLY
     Route: 048
     Dates: start: 20120209, end: 20120229
  8. FASLODEX [Concomitant]
  9. ULTRACET [Concomitant]

REACTIONS (2)
  - PANCREATITIS ACUTE [None]
  - DIARRHOEA [None]
